FAERS Safety Report 7272558-9 (Version None)
Quarter: 2011Q1

REPORT INFORMATION
  Report Type: 
  Country: None (occurrence: None)
  Receive Date: 20110203
  Receipt Date: 20110125
  Transmission Date: 20110831
  Serious: Yes (Hospitalization)
  Sender: FDA-Public Use
  Company Number: CO-ROCHE-755325

PATIENT
  Sex: Male

DRUGS (4)
  1. AMLODIPINO [Concomitant]
     Dosage: FREQUENCY DAILY
     Route: 048
  2. LOSARTAN POTASSIUM [Concomitant]
     Dosage: FREQUENCY : DAILY
     Route: 048
  3. MIRCERA [Suspect]
     Route: 058
     Dates: start: 20100828
  4. CALCIO [Concomitant]
     Dosage: FREQUENCY DAILY
     Route: 048

REACTIONS (1)
  - DYSPNOEA [None]
